FAERS Safety Report 8793533 (Version 5)
Quarter: 2013Q3

REPORT INFORMATION
  Report Type: Report from Study
  Country: IT (occurrence: IT)
  Receive Date: 20120918
  Receipt Date: 20130708
  Transmission Date: 20140515
  Serious: Yes (Hospitalization)
  Sender: FDA-Public Use
  Company Number: PHHY2012IT080803

PATIENT
  Age: 71 Year
  Sex: Male
  Weight: 83.4 kg

DRUGS (16)
  1. CERTICAN [Suspect]
     Dosage: 1 MG, UNK
     Route: 048
     Dates: start: 20070701
  2. CERTICAN [Suspect]
     Dosage: UNK UKN, UNK
     Dates: start: 20110131
  3. LASIX [Concomitant]
     Dosage: 25 MG, UNK
  4. TEGRETOL [Concomitant]
     Dosage: 200 MG, UNK
  5. TICLOPIDINE [Concomitant]
     Dosage: 250 MG, UNK
  6. ALDACTONE [Concomitant]
     Dosage: 25 MG, UNK
  7. ZYLORIC [Concomitant]
     Dosage: 300 MG, UNK
  8. AVODART [Concomitant]
     Dosage: 0.5 MG, UNK
  9. PLAVIX [Concomitant]
     Dosage: 75 MG, UNK
  10. LANSOX [Concomitant]
     Dosage: 30 MG, UNK
  11. CARDICOR [Concomitant]
     Dosage: 5 MG, UNK
  12. NITRODERM TTS [Concomitant]
     Dosage: 10 MG/DAY
     Route: 062
  13. OMNIC [Concomitant]
     Dosage: 0.4 MG, UNK
  14. ACTRAPID HM//INSULIN HUMAN [Concomitant]
     Dosage: 100 IU/ML, UNK
  15. LANTUS [Concomitant]
     Dosage: 100 IU/ML, UNK
  16. DELTACORTENE [Concomitant]
     Dosage: 5 MG, UNK

REACTIONS (8)
  - Convulsion [Recovered/Resolved]
  - Central nervous system infection [Recovered/Resolved]
  - Bacteroides infection [Recovered/Resolved]
  - Staphylococcal infection [Recovered/Resolved]
  - Aortic aneurysm [Recovered/Resolved]
  - Candida sepsis [Recovered/Resolved]
  - Abscess intestinal [Recovered/Resolved]
  - Urinary fistula [Recovered/Resolved]
